FAERS Safety Report 7318329-6 (Version None)
Quarter: 2011Q1

REPORT INFORMATION
  Report Type: 
  Country: None (occurrence: None)
  Receive Date: 20110228
  Receipt Date: 20110216
  Transmission Date: 20110831
  Serious: Yes (Life-Threatening)
  Sender: FDA-Public Use
  Company Number: GB-AMGEN-GBRSP2011009498

PATIENT
  Age: 48 Year
  Sex: Male

DRUGS (9)
  1. LEFLUNOMIDE [Concomitant]
     Dosage: UNK UNK, UNK
  2. AMITRIPTYLINE HCL [Concomitant]
     Dosage: UNK UNK, UNK
  3. BACLOFEN [Concomitant]
     Dosage: UNK UNK, UNK
  4. OMEPRAZOLE [Concomitant]
     Dosage: UNK UNK, UNK
  5. SIMVASTATIN [Concomitant]
     Dosage: UNK UNK, UNK
  6. GABAPENTIN [Concomitant]
     Dosage: UNK UNK, UNK
  7. CARBAMAZEPINE [Concomitant]
     Dosage: UNK UNK, UNK
  8. ENBREL [Suspect]
     Indication: RHEUMATOID ARTHRITIS
     Dosage: 50 MG, UNK
     Route: 058
     Dates: start: 20101026, end: 20101229
  9. MELOXICAM [Concomitant]
     Dosage: UNK UNK, UNK

REACTIONS (1)
  - MYOCARDIAL INFARCTION [None]
